FAERS Safety Report 7066629-X (Version None)
Quarter: 2010Q4

REPORT INFORMATION
  Report Type: 
  Country: None (occurrence: None)
  Receive Date: 20101027
  Receipt Date: 20100709
  Transmission Date: 20110411
  Serious: No
  Sender: FDA-Public Use
  Company Number: US-WYE-H16146910

PATIENT
  Sex: Female
  Weight: 61.29 kg

DRUGS (3)
  1. PREMPRO [Suspect]
     Indication: PRODUCT USED FOR UNKNOWN INDICATION
     Dosage: .625/.25 MG DAILY
     Route: 048
     Dates: start: 20000101, end: 20090101
  2. PREMPRO [Suspect]
     Dosage: 0.45
     Route: 048
     Dates: start: 20090101, end: 20090601
  3. PREMPRO [Suspect]
     Dosage: 0.3
     Route: 048
     Dates: start: 20090601, end: 20100628

REACTIONS (1)
  - BREAST MASS [None]
